FAERS Safety Report 8401217-1 (Version None)
Quarter: 2012Q2

REPORT INFORMATION
  Report Type: 
  Country: None (occurrence: None)
  Receive Date: 20120601
  Receipt Date: 20120525
  Transmission Date: 20120825
  Serious: Yes (Other)
  Sender: FDA-Public Use
  Company Number: PHHY2012VE046246

PATIENT
  Sex: Female

DRUGS (2)
  1. ZOLEDRONOC ACID [Suspect]
     Indication: OSTEOPOROSIS
     Dosage: 5 MG, YEARLY, UNK
     Route: 042
     Dates: start: 20110412
  2. ZOLEDRONOC ACID [Suspect]
     Dosage: 5 MG, YEARLY, UNK
     Route: 042
     Dates: start: 20120421

REACTIONS (4)
  - JOINT EFFUSION [None]
  - ACCIDENT [None]
  - BONE FISSURE [None]
  - ARTHRALGIA [None]
